FAERS Safety Report 4265727-3 (Version None)
Quarter: 2004Q1

REPORT INFORMATION
  Report Type: 
  Country: None (occurrence: None)
  Receive Date: 20040106
  Receipt Date: 20031224
  Transmission Date: 20041129
  Serious: Yes (Hospitalization)
  Sender: FDA-Public Use
  Company Number: US-JNJFOC-20031205427

PATIENT
  Age: 70 Year
  Sex: Female

DRUGS (4)
  1. REMICADE [Suspect]
     Indication: CROHN'S DISEASE
     Dates: start: 20030101
  2. METHOTREXATE SODIUM [Concomitant]
  3. PREDNISONE [Concomitant]
  4. ANTIBIOTICS ( ) ANTIBIOTICS [Concomitant]

REACTIONS (3)
  - NOCARDIOSIS [None]
  - PLEURAL EFFUSION [None]
  - PNEUMONIA [None]
